FAERS Safety Report 7952889-7 (Version None)
Quarter: 2011Q4

REPORT INFORMATION
  Report Type: 
  Country: None (occurrence: None)
  Receive Date: 20111201
  Receipt Date: 20111122
  Transmission Date: 20120403
  Serious: Yes (Hospitalization)
  Sender: FDA-Public Use
  Company Number: BR-ASTRAZENECA-2010SE46505

PATIENT
  Age: 714 Month
  Sex: Male
  Weight: 98 kg

DRUGS (10)
  1. JANUMET [Concomitant]
     Indication: DIABETES MELLITUS
     Dosage: 50/850 MG BID
     Route: 048
  2. CRESTOR [Suspect]
     Indication: DYSLIPIDAEMIA
     Route: 048
     Dates: start: 20091001, end: 20100901
  3. CRESTOR [Suspect]
     Route: 048
     Dates: start: 20100901
  4. METHYLDOPA [Concomitant]
     Indication: HYPERTENSION
     Dosage: OD
     Route: 048
     Dates: end: 20100601
  5. AMLODIPINE BESYLATE [Concomitant]
     Indication: HYPERTENSION
     Route: 048
  6. ATENOLOL [Suspect]
     Indication: HYPERTENSION
     Route: 048
  7. ASPIRIN [Concomitant]
     Indication: ANTICOAGULANT THERAPY
     Route: 048
  8. RASILEZ [Concomitant]
     Indication: HYPERTENSION
     Route: 048
  9. DIAMICRON MR [Concomitant]
     Indication: DIABETES MELLITUS
     Route: 048
  10. EXFORGE [Concomitant]
     Indication: HYPERTENSION
     Dosage: 320/5 MG OD
     Route: 048
     Dates: start: 20100601

REACTIONS (3)
  - DRUG INEFFECTIVE [None]
  - HYPERTENSION [None]
  - DYSLIPIDAEMIA [None]
